FAERS Safety Report 20235478 (Version 4)
Quarter: 2023Q2

REPORT INFORMATION
  Report Type: Other
  Country: AU (occurrence: AU)
  Receive Date: 20211228
  Receipt Date: 20230516
  Transmission Date: 20230721
  Serious: Yes (Hospitalization, Other)
  Sender: FDA-Public Use
  Company Number: AU-TOLMAR, INC.-21AU030969

PATIENT
  Sex: Male

DRUGS (1)
  1. ELIGARD [Suspect]
     Active Substance: LEUPROLIDE ACETATE
     Indication: Prostate cancer
     Dosage: 22.5 MILLIGRAM, Q 3 MONTH
     Dates: start: 20210408

REACTIONS (5)
  - Neoplasm malignant [Unknown]
  - Skin cancer [Unknown]
  - Skin lesion [Unknown]
  - Fall [Unknown]
  - Emotional disorder [Unknown]
